FAERS Safety Report 13648366 (Version 1)
Quarter: 2017Q2

REPORT INFORMATION
  Report Type: Spontaneous
  Country: DE (occurrence: DE)
  Receive Date: 20170613
  Receipt Date: 20170613
  Transmission Date: 20170830
  Serious: Yes (Other)
  Sender: FDA-Public Use
  Company Number: DE-DRREDDYS-GER/GER/17/0091278

PATIENT
  Age: 38 Year
  Sex: Male

DRUGS (11)
  1. QUETIAPINE. [Suspect]
     Active Substance: QUETIAPINE
     Route: 048
     Dates: start: 20170215
  2. SERTRALINE [Suspect]
     Active Substance: SERTRALINE HYDROCHLORIDE
     Indication: PRODUCT USED FOR UNKNOWN INDICATION
     Route: 048
     Dates: end: 20170215
  3. OXYCODONE [Suspect]
     Active Substance: OXYCODONE
     Route: 048
     Dates: start: 20170216
  4. DIAZEPAM. [Suspect]
     Active Substance: DIAZEPAM
     Indication: PRODUCT USED FOR UNKNOWN INDICATION
     Route: 048
  5. PANTOPRAZOLE [Concomitant]
     Active Substance: PANTOPRAZOLE
     Indication: PRODUCT USED FOR UNKNOWN INDICATION
     Route: 048
  6. SERTRALINE [Suspect]
     Active Substance: SERTRALINE HYDROCHLORIDE
     Route: 048
     Dates: start: 20170216
  7. DULOXETINE. [Suspect]
     Active Substance: DULOXETINE
     Indication: PRODUCT USED FOR UNKNOWN INDICATION
     Route: 048
     Dates: start: 20170216, end: 20170217
  8. PREGABALIN. [Suspect]
     Active Substance: PREGABALIN
     Indication: PRODUCT USED FOR UNKNOWN INDICATION
     Route: 048
  9. QUETIAPINE. [Suspect]
     Active Substance: QUETIAPINE
     Indication: PRODUCT USED FOR UNKNOWN INDICATION
     Route: 048
     Dates: end: 20170214
  10. OXYCODONE [Suspect]
     Active Substance: OXYCODONE
     Indication: PRODUCT USED FOR UNKNOWN INDICATION
     Route: 048
     Dates: end: 20170215
  11. AGOMELATINE [Concomitant]
     Active Substance: AGOMELATINE
     Indication: PRODUCT USED FOR UNKNOWN INDICATION

REACTIONS (2)
  - Urinary retention [Recovered/Resolved]
  - Urinary hesitation [Recovered/Resolved]

NARRATIVE: CASE EVENT DATE: 20170216
